FAERS Safety Report 24438823 (Version 1)
Quarter: 2024Q4

REPORT INFORMATION
  Report Type: Spontaneous
  Country: US (occurrence: None)
  Receive Date: 20241014
  Receipt Date: 20241014
  Transmission Date: 20250115
  Serious: Yes (Disabling)
  Sender: Public
  Company Number: None

PATIENT
  Age: 26 Year
  Sex: Male
  Weight: 96.75 kg

DRUGS (5)
  1. FINASTERIDE [Suspect]
     Active Substance: FINASTERIDE
     Indication: Alopecia
     Dosage: FREQUENCY : DAILY;?
     Route: 048
  2. CIALIS [Concomitant]
     Active Substance: TADALAFIL
  3. Ashawaganda, [Concomitant]
  4. ZINC [Concomitant]
  5. VITAMIN D [Concomitant]
     Active Substance: VITAMIN D NOS

REACTIONS (5)
  - Erectile dysfunction [None]
  - Fatigue [None]
  - Memory impairment [None]
  - Affective disorder [None]
  - Libido disorder [None]
